FAERS Safety Report 8524258-2 (Version None)
Quarter: 2012Q3

REPORT INFORMATION
  Report Type: 
  Country: None (occurrence: None)
  Receive Date: 20120720
  Receipt Date: 20120713
  Transmission Date: 20120928
  Serious: Yes (Other)
  Sender: FDA-Public Use
  Company Number: US-PFIZER INC-2012138866

PATIENT
  Sex: Female
  Weight: 68.027 kg

DRUGS (1)
  1. ZYVOX [Suspect]
     Indication: WOUND INFECTION STAPHYLOCOCCAL
     Dosage: UNK, 2X/DAY
     Route: 048
     Dates: start: 20120330, end: 20120409

REACTIONS (6)
  - ASTHENIA [None]
  - COORDINATION ABNORMAL [None]
  - HYPOAESTHESIA [None]
  - MUSCULAR WEAKNESS [None]
  - NECROTISING ULCERATIVE GINGIVOSTOMATITIS [None]
  - DYSGEUSIA [None]
